FAERS Safety Report 8389700-9 (Version None)
Quarter: 2012Q2

REPORT INFORMATION
  Report Type: 
  Country: None (occurrence: None)
  Receive Date: 20120529
  Receipt Date: 20120516
  Transmission Date: 20120825
  Serious: No
  Sender: FDA-Public Use
  Company Number: US-B.I. PHARMACEUTICALS,INC./RIDGEFIELD-2012-BP-10952BP

PATIENT
  Sex: Female

DRUGS (3)
  1. PRADAXA [Suspect]
     Dosage: 150 MG
     Route: 048
  2. SINEMET [Concomitant]
     Indication: PARKINSON'S DISEASE
  3. PRADAXA [Suspect]
     Dosage: 300 MG
     Route: 048

REACTIONS (2)
  - CREATININE RENAL CLEARANCE DECREASED [None]
  - HALLUCINATION [None]
